FAERS Safety Report 9173446 (Version 2)
Quarter: 2013Q4

REPORT INFORMATION
  Report Type: Spontaneous
  Country: BR (occurrence: BR)
  Receive Date: 20130320
  Receipt Date: 20131203
  Transmission Date: 20140711
  Serious: Yes (Other)
  Sender: FDA-Public Use
  Company Number: BR-BAYER-2013-031022

PATIENT
  Sex: Female

DRUGS (1)
  1. YASMIN [Suspect]
     Dosage: UNK
     Route: 048
     Dates: start: 2007, end: 20130128

REACTIONS (7)
  - Pregnancy on oral contraceptive [Recovered/Resolved]
  - Haemorrhage in pregnancy [None]
  - Vomiting [None]
  - Drug dose omission [None]
  - Menstruation delayed [Recovered/Resolved]
  - Gestational diabetes [None]
  - Gestational hypertension [None]
